FAERS Safety Report 9672312 (Version 1)
Quarter: 2013Q4

REPORT INFORMATION
  Report Type: Spontaneous
  Country: JP (occurrence: JP)
  Receive Date: 20131106
  Receipt Date: 20131106
  Transmission Date: 20140711
  Serious: Yes (Other)
  Sender: FDA-Public Use
  Company Number: PHHY2013JP123327

PATIENT
  Age: 47 Year
  Sex: Male

DRUGS (3)
  1. OXALIPLATIN [Suspect]
     Indication: RECTAL CANCER
  2. FOLINIC ACID [Concomitant]
     Indication: RECTAL CANCER
  3. FLUOROURACIL [Concomitant]
     Indication: RECTAL CANCER

REACTIONS (1)
  - Liver injury [Recovered/Resolved]
